FAERS Safety Report 4277717-5 (Version None)
Quarter: 2004Q1

REPORT INFORMATION
  Report Type: 
  Country: None (occurrence: None)
  Receive Date: 20040121
  Receipt Date: 20040107
  Transmission Date: 20041129
  Serious: Yes (Death, Other)
  Sender: FDA-Public Use
  Company Number: DE_040112705

PATIENT
  Age: 21 Year
  Sex: Male

DRUGS (2)
  1. ZYPREXA [Suspect]
     Indication: SCHIZOPHRENIA
     Dosage: 15 MG/DAY
  2. FLUANXOL (FLUPENTIXOL HYDROCHLORIDE) [Concomitant]

REACTIONS (2)
  - COMPLETED SUICIDE [None]
  - VOMITING [None]
